FAERS Safety Report 14951627 (Version 1)
Quarter: 2018Q2

REPORT INFORMATION
  Report Type: Spontaneous
  Country: US (occurrence: US)
  Receive Date: 20180530
  Receipt Date: 20180530
  Transmission Date: 20180711
  Serious: Yes (Hospitalization)
  Sender: FDA-Public Use
  Company Number: US-PFIZER INC-2018217027

PATIENT
  Age: 70 Year
  Sex: Female
  Weight: 117.9 kg

DRUGS (2)
  1. LYRICA [Suspect]
     Active Substance: PREGABALIN
     Indication: DEMYELINATING POLYNEUROPATHY
  2. LYRICA [Suspect]
     Active Substance: PREGABALIN
     Indication: FIBROMYALGIA
     Dosage: 100 MG, 3X/DAY
     Route: 048

REACTIONS (10)
  - Photopsia [Unknown]
  - Bedridden [Unknown]
  - Fall [Recovered/Resolved]
  - Hypokinesia [Unknown]
  - Dizziness [Unknown]
  - Infection [Recovered/Resolved]
  - Feeling abnormal [Unknown]
  - Vision blurred [Unknown]
  - Expired product administered [Unknown]
  - Loss of consciousness [Unknown]
